FAERS Safety Report 5358523-7 (Version None)
Quarter: 2007Q2

REPORT INFORMATION
  Report Type: 
  Country: None (occurrence: None)
  Receive Date: 20070614
  Receipt Date: 20070614
  Transmission Date: 20071010
  Serious: Yes (Hospitalization)
  Sender: FDA-Public Use
  Company Number: None

PATIENT
  Age: 21 Year
  Sex: Female
  Weight: 58.9676 kg

DRUGS (1)
  1. CIPROFLOXACIN [Suspect]
     Indication: INFECTION
     Dosage: 500MG BID PO
     Route: 048
     Dates: start: 20070531, end: 20070531

REACTIONS (5)
  - ANAPHYLACTIC REACTION [None]
  - DYSPNOEA [None]
  - EYE SWELLING [None]
  - LIP SWELLING [None]
  - OXYGEN SATURATION DECREASED [None]
